FAERS Safety Report 6687642-8 (Version None)
Quarter: 2010Q2

REPORT INFORMATION
  Report Type: 
  Country: None (occurrence: None)
  Receive Date: 20100415
  Receipt Date: 20100407
  Transmission Date: 20101027
  Serious: Yes (Hospitalization)
  Sender: FDA-Public Use
  Company Number: 2010JP001096

PATIENT
  Age: 73 Year
  Sex: Male
  Weight: 53 kg

DRUGS (24)
  1. PROGRAF [Suspect]
     Dosage: ORAL
     Route: 048
     Dates: start: 20090411, end: 20090412
  2. PROGRAF [Suspect]
     Dosage: ORAL
     Route: 048
     Dates: start: 20090414
  3. FLUDARABINE (FLUDARABINE) FORMULATION UNKNOWN [Concomitant]
  4. MELPHALAN (MELPHALAN) FORMULATION UNKNOWN [Concomitant]
  5. METHOTREXATE [Concomitant]
  6. GANCICLOVIR [Concomitant]
  7. PREDNISOLONE [Concomitant]
  8. PENTAMIDINE (PENTAMIDINE) FORMULATION UNKNOWN [Concomitant]
  9. CEFTAZIDIME (CEFTAZIDIME) INJECTION [Concomitant]
  10. PHYSISALZ (SODIUM CHLORIDE) INJECTION [Concomitant]
  11. ITRACONAZOLE [Concomitant]
  12. HEPARIN [Concomitant]
  13. POTACOL R (CALCIUM CHLORIDE DIHYDRATE, MALTOSE, POTASSIUM CHLORIDE, SO [Concomitant]
  14. HABEKACIN (ARBEKACIN) INJECTION [Concomitant]
  15. ACTIT (SODIUM CHLORIDE) INJECTION [Concomitant]
  16. LASIX [Concomitant]
  17. METHYCOBAL (MECOBALAMIN) TABLET [Concomitant]
  18. MUCODYNE (CARBOCISTEINE) TABLET [Concomitant]
  19. GLYCYRON (GLYCYRRHIZIC ACID) TABLET [Concomitant]
  20. GASTER (FAMOTIDINE) ORODISPERSIBLE CR TABLET [Concomitant]
  21. URSO (URSODEOXYCHOLIC ACID) TABLET [Concomitant]
  22. ITRIZOLE (ITRACONAZOLE) CAPSULE [Concomitant]
  23. ALDACTONE [Concomitant]
  24. ASVERIN (TIPEPIDINE HIBENZATE) TABLET [Concomitant]

REACTIONS (4)
  - CYTOMEGALOVIRUS INFECTION [None]
  - DIFFUSE ALVEOLAR DAMAGE [None]
  - ORGANISING PNEUMONIA [None]
  - RESPIRATORY FAILURE [None]
